FAERS Safety Report 8251430-1 (Version None)
Quarter: 2012Q1

REPORT INFORMATION
  Report Type: 
  Country: None (occurrence: None)
  Receive Date: 20120321
  Receipt Date: 20110317
  Transmission Date: 20120608
  Serious: Yes (Hospitalization)
  Sender: FDA-Public Use
  Company Number: 2011027927

PATIENT
  Sex: Female
  Weight: 86.1834 kg

DRUGS (3)
  1. RHOPHYLAC [Suspect]
     Indication: PROPHYLAXIS AGAINST RH ISOIMMUNISATION
     Dosage: 300 UG, 300MCG, (1500 IU) INTRAMUSCULAR
     Route: 030
     Dates: start: 20110315
  2. DIPTHERIA/TETOX VACCINE (DIPHTHERIA, TETANUS AND ACELLULAR PERTUSSIS) [Concomitant]
  3. HYDROCODONE BITARTRATE AND IBUPROFEN [Concomitant]

REACTIONS (6)
  - SWOLLEN TONGUE [None]
  - DYSPHONIA [None]
  - SWELLING FACE [None]
  - RASH [None]
  - OEDEMA PERIPHERAL [None]
  - FLUSHING [None]
